FAERS Safety Report 7565339-X (Version None)
Quarter: 2011Q2

REPORT INFORMATION
  Report Type: 
  Country: None (occurrence: None)
  Receive Date: 20110623
  Receipt Date: 20110616
  Transmission Date: 20111010
  Serious: Yes (Hospitalization)
  Sender: FDA-Public Use
  Company Number: US-BIOGENIDEC-2011BI020573

PATIENT
  Age: 72 Year
  Sex: Female

DRUGS (3)
  1. AVONEX [Suspect]
     Route: 030
     Dates: start: 20030101, end: 20060201
  2. AVONEX [Suspect]
     Indication: MULTIPLE SCLEROSIS
     Route: 030
     Dates: start: 20061101
  3. AVONEX [Suspect]
     Route: 030
     Dates: start: 19960501, end: 20030101

REACTIONS (5)
  - DRUG HYPERSENSITIVITY [None]
  - TOOTH LOSS [None]
  - INFLUENZA LIKE ILLNESS [None]
  - HEART RATE DECREASED [None]
  - HEPATIC STEATOSIS [None]
